FAERS Safety Report 5912044-9 (Version None)
Quarter: 2008Q4

REPORT INFORMATION
  Report Type: 
  Country: None (occurrence: None)
  Receive Date: 20081003
  Receipt Date: 20080925
  Transmission Date: 20090506
  Serious: Yes (Hospitalization, Other)
  Sender: FDA-Public Use
  Company Number: GXKR2008DK09312

PATIENT
  Sex: Male

DRUGS (1)
  1. SERTRALINE [Suspect]
     Dosage: MATERNAL DOSE: 175 MG/DAY, TRANSPLACENTAL
     Route: 064

REACTIONS (6)
  - AUTISM [None]
  - CHILLS [None]
  - DRUG EXPOSURE DURING PREGNANCY [None]
  - DRUG WITHDRAWAL SYNDROME NEONATAL [None]
  - MATERNAL DRUGS AFFECTING FOETUS [None]
  - MECHANICAL VENTILATION [None]
